FAERS Safety Report 14911364 (Version 1)
Quarter: 2018Q2

REPORT INFORMATION
  Report Type: Spontaneous
  Country: ES (occurrence: ES)
  Receive Date: 20180518
  Receipt Date: 20180518
  Transmission Date: 20180711
  Serious: Yes (Other)
  Sender: FDA-Public Use
  Company Number: ES-ALEXION PHARMACEUTICALS INC.-A201805700

PATIENT
  Sex: Female

DRUGS (2)
  1. ECULIZUMAB [Suspect]
     Active Substance: ECULIZUMAB
     Indication: PRODUCT USED FOR UNKNOWN INDICATION
     Dosage: UNK
     Route: 065
     Dates: start: 201801
  2. ECULIZUMAB [Suspect]
     Active Substance: ECULIZUMAB
     Dosage: UNK
     Route: 065

REACTIONS (2)
  - Haemolysis [Unknown]
  - Renal impairment [Unknown]

NARRATIVE: CASE EVENT DATE: 201801
